FAERS Safety Report 21094123 (Version 1)
Quarter: 2022Q3

REPORT INFORMATION
  Report Type: Spontaneous
  Country: US (occurrence: None)
  Receive Date: 20220715
  Receipt Date: 20220715
  Transmission Date: 20221027
  Serious: Yes (Other)
  Sender: FDA-Public Use
  Company Number: None

PATIENT
  Age: 54 Year
  Sex: Female

DRUGS (18)
  1. EMGALITY [Suspect]
     Active Substance: GALCANEZUMAB-GNLM
     Indication: Migraine prophylaxis
     Dosage: OTHER FREQUENCY : 30 DAYS ;?
     Route: 058
     Dates: start: 20220524, end: 20220626
  2. ATORVASTATIN [Concomitant]
     Active Substance: ATORVASTATIN
  3. FENOFIBRATE [Concomitant]
     Active Substance: FENOFIBRATE
  4. ASPIRIN [Concomitant]
     Active Substance: ASPIRIN
  5. ASPIRIN [Concomitant]
  6. CALCIUM [Concomitant]
     Active Substance: CALCIUM
  7. CITALOPRAM [Concomitant]
     Active Substance: CITALOPRAM HYDROBROMIDE
  8. GEMFIBROZIL [Concomitant]
     Active Substance: GEMFIBROZIL
  9. IRON 100 PLUS [Concomitant]
  10. HYDROCHLOROTHIAZIDE\LOSARTAN [Concomitant]
     Active Substance: HYDROCHLOROTHIAZIDE\LOSARTAN
  11. OMEPRAZOLE [Concomitant]
     Active Substance: OMEPRAZOLE
  12. POTASSIUM CHLORIDE [Concomitant]
     Active Substance: POTASSIUM CHLORIDE
  13. TOPIRAMATE [Concomitant]
     Active Substance: TOPIRAMATE
  14. VITAMIN C [Concomitant]
     Active Substance: ASCORBIC ACID
  15. COMBIVENT RESPIMAT ORAL [Concomitant]
  16. LANTUS SOLOSTAR [Concomitant]
     Active Substance: INSULIN GLARGINE
  17. NOVOLOG U-100 [Concomitant]
  18. ONE A DAY WOMEN^S 50+ ADVTAB [Concomitant]

REACTIONS (4)
  - Injection site erythema [None]
  - Injection site mass [None]
  - Injection site pain [None]
  - Injection site pruritus [None]

NARRATIVE: CASE EVENT DATE: 20220626
